FAERS Safety Report 5261909-2 (Version None)
Quarter: 2007Q1

REPORT INFORMATION
  Report Type: 
  Country: None (occurrence: None)
  Receive Date: 20070310
  Receipt Date: 20070228
  Transmission Date: 20070707
  Serious: Yes (Hospitalization, Other)
  Sender: FDA-Public Use
  Company Number: 2006UW11280

PATIENT
  Age: 27 Year
  Sex: Female
  Weight: 118.2 kg

DRUGS (4)
  1. SEROQUEL [Suspect]
     Indication: BIPOLAR DISORDER
     Route: 048
  2. ABILIFY [Concomitant]
  3. RISPERDAL [Concomitant]
  4. PROZAC [Concomitant]

REACTIONS (5)
  - CHOLECYSTECTOMY [None]
  - FALL [None]
  - HYSTERECTOMY [None]
  - PANCREATITIS [None]
  - VISUAL ACUITY REDUCED [None]
